FAERS Safety Report 14070158 (Version 2)
Quarter: 2017Q4

REPORT INFORMATION
  Report Type: Spontaneous
  Country: KR (occurrence: KR)
  Receive Date: 20171011
  Receipt Date: 20171122
  Transmission Date: 20180321
  Serious: Yes (Hospitalization, Other)
  Sender: FDA-Public Use
  Company Number: KR-CIPLA LTD.-2017KR17883

PATIENT

DRUGS (5)
  1. 5-FLUROURACIL [Concomitant]
     Active Substance: FLUOROURACIL
     Indication: ADENOCARCINOMA OF COLON
     Dosage: 400 MG/M2 AS AN INTRAVENOUS BOLUS ON DAY 1 (CYCLES)
     Route: 040
     Dates: start: 201301
  2. 5-FLUROURACIL [Concomitant]
     Active Substance: FLUOROURACIL
     Dosage: , CONTINUOUS INFUSION OF 1,200 MG/M2/DAY ON DAYS 1 AND 2 (CYCLE)UNK
     Route: 041
     Dates: start: 201301
  3. OXALIPLATIN. [Suspect]
     Active Substance: OXALIPLATIN
     Dosage: 70 MG/M2, (12 CYCLES) (5HRS)
     Route: 065
  4. LEUCOVORIN. [Concomitant]
     Active Substance: LEUCOVORIN
     Indication: ADENOCARCINOMA OF COLON
     Dosage: 200 MG/M2 ON DAY 1, (CYCLE)
     Route: 065
     Dates: start: 201301
  5. OXALIPLATIN. [Suspect]
     Active Substance: OXALIPLATIN
     Indication: ADENOCARCINOMA OF COLON
     Dosage: 85 MG/M2 ON DAY 1 (12 CYCLES) (9 HRS)
     Route: 065
     Dates: start: 201301

REACTIONS (4)
  - Leukopenia [Recovered/Resolved]
  - Thrombocytopenia [Recovered/Resolved]
  - Neutropenia [Recovered/Resolved]
  - Spinal pain [Recovering/Resolving]
